FAERS Safety Report 15183343 (Version 21)
Quarter: 2021Q4

REPORT INFORMATION
  Report Type: Report from Study
  Country: DE (occurrence: DE)
  Receive Date: 20180723
  Receipt Date: 20211008
  Transmission Date: 20220303
  Serious: Yes (Death, Life-Threatening, Hospitalization, Other)
  Sender: FDA-Public Use
  Company Number: DE-ROCHE-348350

PATIENT
  Age: 73 Year
  Sex: Female
  Weight: 69 kg

DRUGS (144)
  1. ACETAMINOPHEN [Suspect]
     Active Substance: ACETAMINOPHEN
     Indication: Pain
     Dosage: 500 MILLIGRAM, QD
     Route: 048
     Dates: start: 20010711, end: 20010711
  2. METFORMIN [Suspect]
     Active Substance: METFORMIN HYDROCHLORIDE
     Indication: Diabetes mellitus
     Dosage: 250 MILLIGRAM, QD,250 MG, EVERY 29 DAYS
     Route: 048
     Dates: start: 20010616, end: 20010714
  3. METFORMIN [Suspect]
     Active Substance: METFORMIN HYDROCHLORIDE
     Indication: Coronary artery disease
     Dosage: 7 MILLIGRAM, QD
     Route: 048
     Dates: start: 20010616, end: 20010714
  4. AMLODIPINE [Suspect]
     Active Substance: AMLODIPINE BESYLATE
     Indication: Coronary artery disease
     Dosage: 10 MILLIGRAM, QD
     Route: 048
     Dates: start: 20010703, end: 20010714
  5. AMLODIPINE [Suspect]
     Active Substance: AMLODIPINE BESYLATE
     Dosage: 5 MILLIGRAM
     Route: 048
     Dates: start: 20010703, end: 20010714
  6. BISOPROLOL [Suspect]
     Active Substance: BISOPROLOL
     Indication: Coronary artery disease
     Dosage: 5 MILLIGRAM, QD
     Route: 048
     Dates: start: 20010714, end: 20010714
  7. BISOPROLOL [Suspect]
     Active Substance: BISOPROLOL
     Dosage: 5 MILLIGRAM
     Route: 048
     Dates: end: 20010714
  8. BISOPROLOL [Suspect]
     Active Substance: BISOPROLOL
     Dosage: 8 MG, EVERY 29 DAYS
     Route: 048
     Dates: start: 20010616, end: 20010714
  9. ISOSORBIDE MONONITRATE [Suspect]
     Active Substance: ISOSORBIDE MONONITRATE
     Indication: Coronary artery disease
     Dosage: 1 DOSAGE FORM, QD
     Route: 048
     Dates: start: 20010703, end: 20010714
  10. ISOSORBIDE MONONITRATE [Suspect]
     Active Substance: ISOSORBIDE MONONITRATE
     Dosage: UNK
     Route: 048
     Dates: start: 20010703, end: 20010714
  11. ISOSORBIDE MONONITRATE [Suspect]
     Active Substance: ISOSORBIDE MONONITRATE
     Dosage: 1 DF, DAILY
     Route: 048
     Dates: start: 20010703, end: 20010714
  12. METOCLOPRAMIDE [Suspect]
     Active Substance: METOCLOPRAMIDE
     Indication: Nausea
     Dosage: 7 MILLIGRAM, QD
     Route: 048
     Dates: start: 20010704, end: 20010712
  13. METOCLOPRAMIDE [Suspect]
     Active Substance: METOCLOPRAMIDE
     Dosage: 75 MILLIGRAM, QD
     Route: 048
     Dates: start: 20010704, end: 20010712
  14. METOCLOPRAMIDE [Suspect]
     Active Substance: METOCLOPRAMIDE
     Dosage: 7 MILLIGRAM, EVERY 9 DAY
     Route: 048
     Dates: start: 20010704, end: 20010712
  15. CLOPIDOGREL BISULFATE [Suspect]
     Active Substance: CLOPIDOGREL BISULFATE
     Indication: Coronary artery disease
     Dosage: 75 MILLIGRAM, QD
     Route: 048
     Dates: start: 20010704, end: 20010714
  16. YEAST [Suspect]
     Active Substance: YEAST
     Indication: Diarrhoea
     Dosage: 300 MILLIGRAM
     Route: 048
     Dates: start: 20010711, end: 20010714
  17. YEAST [Suspect]
     Active Substance: YEAST
     Dosage: 100 MILLIGRAM
     Route: 048
     Dates: start: 20010711, end: 20010714
  18. ASPIRIN [Suspect]
     Active Substance: ASPIRIN
     Indication: Coronary artery disease
     Dosage: 100 MG (DAILY DOSE), ORAL,DOSE REDUCED FROM 16 TO 8 MY DAILY
     Route: 048
     Dates: start: 20010616, end: 20010714
  19. ASPIRIN [Suspect]
     Active Substance: ASPIRIN
     Dosage: UNK
  20. CLORAZEPATE DIPOTASSIUM [Suspect]
     Active Substance: CLORAZEPATE DIPOTASSIUM
     Indication: Restlessness
     Dosage: 10 MG, QD
     Route: 048
     Dates: start: 20010710, end: 20010714
  21. CLORAZEPATE DIPOTASSIUM [Suspect]
     Active Substance: CLORAZEPATE DIPOTASSIUM
     Dosage: UNK
     Route: 065
     Dates: start: 20010710
  22. CLORAZEPATE DIPOTASSIUM [Suspect]
     Active Substance: CLORAZEPATE DIPOTASSIUM
     Indication: Restlessness
     Dosage: 10 MILLIGRAM, QD
     Route: 048
     Dates: start: 20010710, end: 20010714
  23. CLORAZEPATE DIPOTASSIUM [Suspect]
     Active Substance: CLORAZEPATE DIPOTASSIUM
     Dosage: UNK
     Route: 048
  24. CLORAZEPATE DIPOTASSIUM [Suspect]
     Active Substance: CLORAZEPATE DIPOTASSIUM
     Indication: Restlessness
     Dosage: 10 MG, DAILY
     Route: 048
     Dates: start: 20010710, end: 20010714
  25. CLOPIDOGREL BISULFATE [Suspect]
     Active Substance: CLOPIDOGREL BISULFATE
     Indication: Coronary artery disease
     Dosage: 75 MILLIGRAM, QD
     Route: 048
     Dates: start: 20010704, end: 20010714
  26. PREDNISOLONE [Suspect]
     Active Substance: PREDNISOLONE
     Indication: Dyspnoea
     Dosage: 50 MG, QD, GALENICAL FORM:SOLUTION
     Route: 042
     Dates: start: 20010703, end: 20010703
  27. CLORAZEPATE DIPOTASSIUM [Suspect]
     Active Substance: CLORAZEPATE DIPOTASSIUM
     Indication: Restlessness
     Dosage: 10 MILLIGRAM
     Route: 048
     Dates: start: 20010710, end: 20010714
  28. METOCLOPRAMIDE [Suspect]
     Active Substance: METOCLOPRAMIDE
     Indication: Nausea
     Dosage: UNK UNK, QD
     Route: 048
  29. NORVASC [Suspect]
     Active Substance: AMLODIPINE BESYLATE
     Indication: Coronary artery disease
     Dosage: 10 MG, QD (5 MG, BID)
     Route: 048
     Dates: start: 20010703, end: 20010714
  30. NORVASC [Suspect]
     Active Substance: AMLODIPINE BESYLATE
     Dosage: 5 MILLIGRAM, QD
     Route: 048
     Dates: start: 20010703, end: 20010714
  31. FRAGMIN [Suspect]
     Active Substance: DALTEPARIN SODIUM
     Indication: Thrombosis prophylaxis
     Dosage: 2500 IU (DAILY DOSE),Q12D
     Route: 058
     Dates: start: 20010703, end: 20010714
  32. FRAGMIN [Suspect]
     Active Substance: DALTEPARIN SODIUM
     Dosage: UNK
     Route: 058
     Dates: start: 20010703, end: 20010714
  33. LASIX [Suspect]
     Active Substance: FUROSEMIDE
     Indication: Hypertension
     Dosage: 80 MG (DAILY DOSE) 120 MG, DOSE RANGED FROM 80 MG-120 MG DAILY
     Route: 042
     Dates: start: 20010703, end: 20010714
  34. LASIX [Suspect]
     Active Substance: FUROSEMIDE
     Dosage: 120 MG, QD, DOSE RANGED FROM 80 MG-120 MG
     Route: 042
     Dates: start: 20010703, end: 20010714
  35. HALDOL [Suspect]
     Active Substance: HALOPERIDOL
     Indication: Restlessness
     Dosage: 3 DOSAGE FORM, QD
     Route: 016
     Dates: start: 20010713, end: 20010714
  36. ATORVASTATIN CALCIUM [Suspect]
     Active Substance: ATORVASTATIN CALCIUM
     Indication: Hyperlipidaemia
     Dosage: 20 MILLIGRAM, QD
     Route: 048
     Dates: start: 20010616, end: 20010713
  37. MELPERONE HYDROCHLORIDE [Suspect]
     Active Substance: MELPERONE HYDROCHLORIDE
     Indication: Restlessness
     Dosage: 16 ML (DAILY DOSE), , ORAL
     Route: 048
     Dates: start: 20010706, end: 20010712
  38. MELPERONE HYDROCHLORIDE [Suspect]
     Active Substance: MELPERONE HYDROCHLORIDE
     Dosage: 105 MG, 1D, (DOSE RANGED FROM 80-105 MG)
     Route: 048
     Dates: start: 20010706, end: 20010712
  39. PREDNISONE [Suspect]
     Active Substance: PREDNISONE
     Indication: Dyspnoea
     Dosage: 50 MG, QD, DOSE RANGED FROM 80-105 MG DAILY
     Route: 042
     Dates: start: 20010703, end: 20010703
  40. PREDNISONE [Suspect]
     Active Substance: PREDNISONE
     Indication: Restlessness
  41. CIPROFLOXACIN HYDROCHLORIDE [Suspect]
     Active Substance: CIPROFLOXACIN HYDROCHLORIDE
     Indication: Cholecystitis
     Dosage: 500 MILLIGRAM, QD
     Route: 048
     Dates: start: 20010620
  42. CIPROFLOXACIN HYDROCHLORIDE [Suspect]
     Active Substance: CIPROFLOXACIN HYDROCHLORIDE
     Dosage: 250 MILLIGRAM, BID (500 MG, QD), DOSE DECREASED FROM 80 TO 40 MG DAILY
     Route: 048
     Dates: start: 20010710, end: 20010711
  43. CIPROFLOXACIN HYDROCHLORIDE [Suspect]
     Active Substance: CIPROFLOXACIN HYDROCHLORIDE
     Dosage: 250 MILLIGRAM, QD (250 MG, BID)
     Route: 048
     Dates: start: 20010710, end: 20010711
  44. CIPROFLOXACIN HYDROCHLORIDE [Suspect]
     Active Substance: CIPROFLOXACIN HYDROCHLORIDE
     Dosage: 250 MILLIGRAM, BID,LAST DOSE ON 11/JUL/2001
     Route: 048
     Dates: start: 20010628, end: 20010711
  45. CIPROFLOXACIN HYDROCHLORIDE [Suspect]
     Active Substance: CIPROFLOXACIN HYDROCHLORIDE
     Dosage: 1000 MILLIGRAM, QD (500 MG, BID)
     Route: 048
     Dates: start: 20010620, end: 20010628
  46. NOVODIGAL (.BETA.-ACETYLDIGOXIN) [Suspect]
     Active Substance: .BETA.-ACETYLDIGOXIN
     Indication: Coronary artery disease
     Dosage: 1 DOSAGE FORM, QD
     Route: 048
     Dates: start: 20010703
  47. NOVODIGAL (.BETA.-ACETYLDIGOXIN) [Suspect]
     Active Substance: .BETA.-ACETYLDIGOXIN
     Dosage: 2 MILLIGRAM, QD,1 DF, DAILY
     Route: 048
     Dates: start: 20010703, end: 20010714
  48. NOVODIGAL (.BETA.-ACETYLDIGOXIN) [Suspect]
     Active Substance: .BETA.-ACETYLDIGOXIN
     Dosage: 0.3 MILLIGRAM
     Route: 048
     Dates: start: 20010703, end: 20010714
  49. NOVODIGAL (.BETA.-ACETYLDIGOXIN) [Suspect]
     Active Substance: .BETA.-ACETYLDIGOXIN
     Dosage: UNK
     Route: 048
  50. DIGOXIN [Suspect]
     Active Substance: DIGOXIN
     Indication: Coronary artery disease
     Dosage: 0.2 MG (DAILY DOSE), ORAL
     Route: 048
     Dates: start: 20010703, end: 20010714
  51. DIGOXIN [Suspect]
     Active Substance: DIGOXIN
     Dosage: 0.3 MILLIGRAM, QD
     Route: 048
     Dates: start: 20010703, end: 20010714
  52. DIGOXIN [Suspect]
     Active Substance: DIGOXIN
     Dosage: 4 MILLIGRAM
     Route: 048
     Dates: start: 20010703, end: 20010714
  53. DIGOXIN [Suspect]
     Active Substance: DIGOXIN
     Dosage: UNK MILLIGRAM
     Route: 048
     Dates: start: 20010703, end: 20010714
  54. DIGOXIN [Suspect]
     Active Substance: DIGOXIN
     Dosage: UNK
     Route: 048
     Dates: start: 20010703
  55. ZAROXOLYN [Suspect]
     Active Substance: METOLAZONE
     Indication: Hypertension
     Dosage: 2 MILLIGRAM, QD
     Route: 048
     Dates: start: 20010712, end: 20010713
  56. MOLSIDOMINE [Suspect]
     Active Substance: MOLSIDOMINE
     Indication: Coronary artery disease
     Dosage: 8 MG, (DOSE REDUCED FROM 16 TO 8 MG DAILY)
     Route: 048
     Dates: start: 20010703, end: 20010714
  57. MOLSIDOMINE [Suspect]
     Active Substance: MOLSIDOMINE
     Dosage: 16 MILLIGRAM,8 MG, QD, 16MG-8MG (8 MG, (DOSE REDUCED FROM 16 TO
     Route: 048
     Dates: start: 20010703, end: 20010714
  58. MOLSIDOMINE [Suspect]
     Active Substance: MOLSIDOMINE
     Dosage: 8 MILLIGRAM, QD,(DOSE REDUCED FROM 16 TO 8 MG DAILY)
     Route: 048
     Dates: start: 20010703, end: 20010704
  59. MOLSIDOMINE [Suspect]
     Active Substance: MOLSIDOMINE
     Dosage: 16 MILLIGRAM, BID
     Route: 048
     Dates: start: 20010703
  60. MOLSIDOMINE [Suspect]
     Active Substance: MOLSIDOMINE
     Dosage: 16 MG, EVERY 12 DAYS
     Route: 048
     Dates: start: 20010714
  61. MOLSIDOMINE [Suspect]
     Active Substance: MOLSIDOMINE
     Dosage: 16 MG, EVERY 12 DAYS
     Route: 048
     Dates: start: 20010703
  62. MOLSIDOMINE [Suspect]
     Active Substance: MOLSIDOMINE
     Dosage: UNK UNK, QD,UNK,(8 MG,DOSEREDUCED FROM 16 TO8MG DAILY)
     Route: 048
     Dates: start: 20010703
  63. MOLSIDOMINE [Suspect]
     Active Substance: MOLSIDOMINE
     Dosage: UNK
     Route: 065
  64. MOLSIDOMINE [Suspect]
     Active Substance: MOLSIDOMINE
     Dosage: 8 MILLIGRAM, BID
     Route: 048
     Dates: start: 20010703, end: 20010714
  65. DIAZEPAM [Suspect]
     Active Substance: DIAZEPAM
     Indication: Restlessness
     Dosage: 15 MILLIGRAM, QD (TOTAL DAILY DOSE RANGED FROM 1376.8 MG TO 2065.2 MG)
     Route: 048
     Dates: start: 20010616, end: 20010703
  66. DIAZEPAM [Suspect]
     Active Substance: DIAZEPAM
     Dosage: 5 MILLIGRAM,(TOTAL DAILY DOSE RANGED FROM 1376.8 MG TO 2065.2 MG)
     Route: 048
     Dates: start: 20010616, end: 20010703
  67. AMPHOTERICIN B\TETRACYCLINE [Suspect]
     Active Substance: AMPHOTERICIN B\TETRACYCLINE
     Indication: Prophylaxis
     Dosage: 8 DOSAGE FORM, QD
     Route: 048
     Dates: start: 20010703, end: 20010714
  68. AMPHOTERICIN B\TETRACYCLINE [Suspect]
     Active Substance: AMPHOTERICIN B\TETRACYCLINE
     Indication: Antifungal prophylaxis
     Dosage: 200 MILLIGRAM, QD, 200 MILLIGRAM, Q12D (UNK DOSE FORM STATED AS PIPETTES)
     Route: 048
     Dates: start: 20010703, end: 20010714
  69. ROCEPHIN [Suspect]
     Active Substance: CEFTRIAXONE SODIUM
     Indication: Pyrexia
     Dosage: 1 GRAM, BID, (2G, QD),INTRAVENOUS
     Route: 042
     Dates: start: 20010629, end: 20010703
  70. ROCEPHIN [Suspect]
     Active Substance: CEFTRIAXONE SODIUM
     Dosage: 1 GRAM, QD (1 G, BID)
     Route: 042
     Dates: start: 20010629, end: 20010703
  71. CEFTRIAXONE SODIUM [Suspect]
     Active Substance: CEFTRIAXONE SODIUM
     Indication: Pyrexia
     Dosage: 1 GRAM, BID
     Route: 042
     Dates: start: 20010703
  72. CEFTRIAXONE SODIUM [Suspect]
     Active Substance: CEFTRIAXONE SODIUM
     Dosage: 1 GRAM, BID, (2 G QD),MOST RECENT DOSE: 03/JUL/2001
     Route: 042
     Dates: start: 20010629, end: 20010703
  73. CEFTRIAXONE SODIUM [Suspect]
     Active Substance: CEFTRIAXONE SODIUM
     Dosage: 2 GRAM, BID
     Route: 042
     Dates: start: 20010629, end: 20010703
  74. CEFTRIAXONE SODIUM [Suspect]
     Active Substance: CEFTRIAXONE SODIUM
     Dosage: DOSE RANGED FROM 20-30 MG DAILY DRUG STRUCTURE
     Route: 042
     Dates: start: 20010729
  75. SODIUM PERCHLORATE [Suspect]
     Active Substance: SODIUM PERCHLORATE
     Indication: Hyperthyroidism
     Dosage: 688 MILLIGRAM, (TOTAL DAILY DOSE RANGED FROM 1376.8 MG TO
     Route: 048
     Dates: start: 20010618, end: 20010714
  76. PREDNISONE [Suspect]
     Active Substance: PREDNISONE
     Indication: Dyspnoea
     Dosage: 50 MILLIGRAM, QD
     Dates: start: 20010703, end: 20010703
  77. METFORMIN HYDROCHLORIDE [Suspect]
     Active Substance: METFORMIN HYDROCHLORIDE
     Indication: Diabetes mellitus
     Dosage: 750 MILLIGRAM, QD
     Route: 048
     Dates: end: 20010714
  78. METFORMIN HYDROCHLORIDE [Suspect]
     Active Substance: METFORMIN HYDROCHLORIDE
     Indication: Coronary artery disease
     Dosage: UNK
     Route: 065
     Dates: start: 20010703
  79. METFORMIN HYDROCHLORIDE [Suspect]
     Active Substance: METFORMIN HYDROCHLORIDE
     Dosage: 7 MILLIGRAM
     Route: 048
     Dates: start: 20010616, end: 20010714
  80. METFORMIN HYDROCHLORIDE [Suspect]
     Active Substance: METFORMIN HYDROCHLORIDE
     Dosage: 250 MILLIGRAM, EVERY 29 DAYS
     Route: 048
     Dates: start: 20010616, end: 20010714
  81. CAPTOPRIL [Suspect]
     Active Substance: CAPTOPRIL
     Indication: Coronary artery disease
     Dosage: 1 DF, EVERY 29 DAYS 1MOL/ML
     Route: 048
     Dates: start: 20010616, end: 20010714
  82. CAPTOPRIL [Suspect]
     Active Substance: CAPTOPRIL
     Dosage: UNK UNK, EVERY 29 DAYS
     Route: 048
     Dates: start: 20010616, end: 20010714
  83. CARBIMAZOLE [Suspect]
     Active Substance: CARBIMAZOLE
     Indication: Hyperthyroidism
     Dosage: 20 MILLIGRAM, QD (DOSE RANGED FROM 20-30 MG DAILY)
     Route: 048
     Dates: start: 20010621, end: 20010714
  84. CARBIMAZOLE [Suspect]
     Active Substance: CARBIMAZOLE
     Dosage: 30 MG, (DOSE RANGED FROM 20-30 MG DAILY)
     Route: 048
     Dates: start: 20010621, end: 20010714
  85. CARBIMAZOLE [Suspect]
     Active Substance: CARBIMAZOLE
     Dosage: UNK
     Route: 065
     Dates: start: 20010621, end: 20010714
  86. TETRACYCLINE HYDROCHLORIDE [Suspect]
     Active Substance: TETRACYCLINE HYDROCHLORIDE
     Indication: Antifungal prophylaxis
     Dosage: 200 MILLIGRAM, QD
     Route: 048
     Dates: start: 20010703, end: 20010714
  87. RAMIPRIL [Suspect]
     Active Substance: RAMIPRIL
     Indication: Coronary artery disease
     Dosage: 5 MILLIGRAM, QD
     Route: 048
     Dates: start: 20010616, end: 20010714
  88. RAMIPRIL [Suspect]
     Active Substance: RAMIPRIL
     Dosage: 10 MILLIGRAM, QD/FREQUENCY EVERY 29 DAY
     Route: 048
     Dates: start: 20010616, end: 20010714
  89. PANTOZOL [Suspect]
     Active Substance: PANTOPRAZOLE SODIUM
     Indication: Dyspnoea
     Dosage: 50 MILLIGRAM, QD
     Route: 042
     Dates: start: 20010703, end: 20010703
  90. PANTOZOL [Suspect]
     Active Substance: PANTOPRAZOLE SODIUM
     Indication: Prophylaxis
  91. SODIUM PERCHLORATE [Suspect]
     Active Substance: SODIUM PERCHLORATE
     Indication: Hyperthyroidism
     Dosage: 688 MG, UNK(TOTAL DAILY DOSE RANGED FROM 1376.8 MG TO 2065.2 MG
     Route: 048
     Dates: start: 20010618, end: 20010714
  92. BISOPROLOL FUMARATE [Suspect]
     Active Substance: BISOPROLOL FUMARATE
     Indication: Coronary artery disease
     Dosage: 5 MILLIGRAM, QD
     Route: 048
     Dates: end: 20010714
  93. BISOPROLOL FUMARATE [Suspect]
     Active Substance: BISOPROLOL FUMARATE
     Dosage: 8 MILLIGRAM, EVERY 29 DAYS
     Route: 048
     Dates: start: 20010616, end: 20010714
  94. HALDOL [Suspect]
     Active Substance: HALOPERIDOL
     Indication: Restlessness
     Dosage: UNK
     Route: 048
     Dates: start: 20010713, end: 20010713
  95. HALDOL [Suspect]
     Active Substance: HALOPERIDOL
     Dosage: 1 DOSAGE FORM, QD (UNIT DOSE: 3 [DRP] UNK LAST DOSE ON 14/JUL/2001)
     Route: 048
     Dates: start: 20010713, end: 20010714
  96. HALDOL [Suspect]
     Active Substance: HALOPERIDOL
     Dosage: 3 GTT DROPS
     Route: 048
     Dates: start: 20010713, end: 20010714
  97. ATORVASTATIN [Suspect]
     Active Substance: ATORVASTATIN
     Indication: Hyperlipidaemia
     Dosage: 20 MILLIGRAM, QD, EVERY 18 DAYS
     Route: 048
     Dates: start: 20010616, end: 20010703
  98. AMARYL [Suspect]
     Active Substance: GLIMEPIRIDE
     Indication: Diabetes mellitus
     Dosage: 3 MILLIGRAM, EVERY 18 DAYS
     Route: 048
     Dates: start: 20010616, end: 20010703
  99. PANTOPRAZOLE SODIUM [Suspect]
     Active Substance: PANTOPRAZOLE SODIUM
     Indication: Prophylaxis
     Dosage: 40 MG, 1D (DECREASED FROM 80 TO 40)
     Route: 048
     Dates: start: 20010616, end: 20010714
  100. PANTOPRAZOLE SODIUM [Suspect]
     Active Substance: PANTOPRAZOLE SODIUM
     Dosage: 80 MILLIGRAM, QD
     Route: 048
     Dates: start: 20010616, end: 20010714
  101. PANTOPRAZOLE SODIUM [Suspect]
     Active Substance: PANTOPRAZOLE SODIUM
     Dosage: 80 MILLIGRAM, QD
     Route: 048
     Dates: end: 20010714
  102. PANTOPRAZOLE SODIUM [Suspect]
     Active Substance: PANTOPRAZOLE SODIUM
     Dosage: 80 MILLIGRAM, QD
     Route: 048
     Dates: start: 20010616
  103. PREDNISONE [Suspect]
     Active Substance: PREDNISONE
     Indication: Restlessness
     Dosage: 50 MILLIGRAM, QD
     Route: 048
     Dates: start: 20010703, end: 20010703
  104. PREDNISONE [Suspect]
     Active Substance: PREDNISONE
     Indication: Dyspnoea
  105. PERENTEROL [Suspect]
     Active Substance: SACCHAROMYCES CEREVISIAE
     Indication: Diarrhoea
     Dosage: 300 MILLIGRAM, QD, 100 TO 300 MG, DOSE RANGED FROM 80 MG-120 MG DAILY
     Route: 048
     Dates: start: 20010711, end: 20010714
  106. PERENTEROL [Suspect]
     Active Substance: SACCHAROMYCES CEREVISIAE
     Dosage: 100 MG, UNK, 100 TO 300 MG
     Route: 048
     Dates: start: 20010711, end: 20010714
  107. PANTOZOL [Suspect]
     Active Substance: PANTOPRAZOLE SODIUM
     Indication: Prophylaxis
     Dosage: 80 MILLIGRAM, QD (DOSE DECREASED FROM 80 TO 40 MG DIALY)
     Route: 048
     Dates: start: 20010616
  108. PANTOZOL [Suspect]
     Active Substance: PANTOPRAZOLE SODIUM
     Dosage: 40 MILLIGRAM, QD, DOSE DECREASED FROM 80 TO 40 MG DAILY) MOST RECENT DOSE:14/JUL/2001
     Route: 048
     Dates: start: 20010616, end: 20010714
  109. PANTOZOL [Suspect]
     Active Substance: PANTOPRAZOLE SODIUM
     Dosage: 40 MILLIGRAM, QD, DOSE DECREASED FROM 80 TO 40 MG DAILY) MOST RECENT DOSE:14/JUL/2001
     Route: 048
     Dates: start: 20010614
  110. DIGOXIN [Suspect]
     Active Substance: DIGOXIN
     Indication: Restlessness
     Dosage: 5 MILLIGRAM
     Dates: start: 20010616, end: 20010703
  111. HALOPERIDOL [Suspect]
     Active Substance: HALOPERIDOL
     Indication: Restlessness
     Dosage: UNK
     Route: 016
     Dates: start: 20010713, end: 20010714
  112. HALOPERIDOL [Suspect]
     Active Substance: HALOPERIDOL
     Dosage: UNK
     Route: 048
     Dates: start: 20010713, end: 20010714
  113. DIGOXIN [Suspect]
     Active Substance: DIGOXIN
     Indication: Coronary artery disease
     Dosage: 1 DF, DAILY
     Route: 048
     Dates: start: 20010703, end: 20010714
  114. POTASSIUM CHLORIDE [Suspect]
     Active Substance: POTASSIUM CHLORIDE
     Indication: Electrolyte imbalance
     Dosage: 1500 MILLIGRAM, TID,(6000 MILLIGRAM, QD)
     Route: 048
     Dates: start: 20010703, end: 20010714
  115. HALDOL [Suspect]
     Active Substance: HALOPERIDOL
     Indication: Restlessness
     Dosage: 3 GTT, QD DROP (1/12 MILLILITRE
     Route: 048
     Dates: start: 20010713, end: 20010714
  116. HALDOL [Suspect]
     Active Substance: HALOPERIDOL
     Dosage: UNK
     Route: 048
     Dates: start: 20010713, end: 20010714
  117. LANTUS [Suspect]
     Active Substance: INSULIN GLARGINE
     Indication: Diabetes mellitus
     Dosage: 16 INTERNATIONAL UNIT, QD
     Route: 058
     Dates: start: 20010616, end: 20010629
  118. AMPHOTERICIN B [Suspect]
     Active Substance: AMPHOTERICIN B
     Indication: Antifungal prophylaxis
     Dosage: 200 MILLIGRAM
     Route: 048
     Dates: start: 20100703, end: 20100714
  119. BROMAZEPAM [Concomitant]
     Active Substance: BROMAZEPAM
     Indication: Restlessness
     Dosage: 2 MILLIGRAM
     Route: 048
     Dates: start: 20010713, end: 20010714
  120. BROMAZEPAM [Concomitant]
     Active Substance: BROMAZEPAM
     Indication: Restlessness
     Dosage: 3 MILLIGRAM, QD(1.5 MG, BID)
     Route: 048
     Dates: start: 20010713, end: 20010714
  121. BROMAZEPAM [Concomitant]
     Active Substance: BROMAZEPAM
     Dosage: 2 MILLIGRAM, BID (4 MILLIGRAM, QD)
     Route: 048
     Dates: start: 20010713, end: 20010714
  122. BROMAZEPAM [Concomitant]
     Active Substance: BROMAZEPAM
     Dosage: 2 MILLIGRAM
     Route: 065
  123. BROMAZEPAM [Concomitant]
     Active Substance: BROMAZEPAM
     Dosage: 1.5 MILLIGRAM, BID
     Route: 048
     Dates: start: 20010713, end: 20010714
  124. POTASSIUM CHLORIDE [Concomitant]
     Active Substance: POTASSIUM CHLORIDE
     Indication: Electrolyte imbalance
     Dosage: DOSE STATED AS 2. NO UNITS PROVIDED
     Route: 048
     Dates: start: 20010703, end: 20010714
  125. POTASSIUM CHLORIDE [Concomitant]
     Active Substance: POTASSIUM CHLORIDE
     Dosage: 1 DOSAGE FORM, 1 DF=2 UNITS NOS
     Route: 048
     Dates: start: 20010703, end: 20010714
  126. POTASSIUM CHLORIDE [Concomitant]
     Active Substance: POTASSIUM CHLORIDE
     Dosage: 1500 MILLIGRAM, BID (3000 MG,QD),1500 MG, Q12D
     Route: 048
     Dates: start: 20010703, end: 20010714
  127. POTASSIUM [Concomitant]
     Active Substance: POTASSIUM
     Indication: Electrolyte imbalance
     Dosage: 1500 MILLIGRAM, BID
     Route: 048
     Dates: start: 20010703, end: 20010714
  128. GLIMEPIRIDE [Concomitant]
     Active Substance: GLIMEPIRIDE
     Indication: Diabetes mellitus
     Dosage: 3 MILLIGRAM, QD (3 MG, QD, EVERY DAYS)
     Route: 048
     Dates: start: 20010616, end: 20010703
  129. GLIMEPIRIDE [Concomitant]
     Active Substance: GLIMEPIRIDE
     Dosage: 3 MILLIGRAM, QD
     Route: 048
     Dates: start: 20010703
  130. GLIMEPIRIDE [Concomitant]
     Active Substance: GLIMEPIRIDE
     Dosage: 3 MILLIGRAM, QD (3 MG, UNK, EVERY 18 DAYS)
     Route: 048
     Dates: start: 20010616, end: 20010703
  131. INSULIN GLARGINE [Concomitant]
     Active Substance: INSULIN GLARGINE
     Indication: Diabetes mellitus
     Dosage: UNK
     Route: 065
     Dates: start: 20010629
  132. INSULIN GLARGINE [Concomitant]
     Active Substance: INSULIN GLARGINE
     Dosage: 16 INTERNATIONAL UNIT
     Route: 058
     Dates: start: 20010629
  133. SODIUM PERCHLORATE [Concomitant]
     Active Substance: SODIUM PERCHLORATE
     Indication: Hyperthyroidism
     Dosage: UNK
     Route: 048
     Dates: start: 20010618, end: 20010714
  134. SODIUM PERCHLORATE [Concomitant]
     Active Substance: SODIUM PERCHLORATE
     Dosage: 20 GTT DROPS, TID, (1/12 MILLILITRE)
     Route: 048
     Dates: start: 20010618, end: 20010714
  135. BISOPROLOL FUMARATE [Concomitant]
     Active Substance: BISOPROLOL FUMARATE
     Indication: Coronary artery disease
     Dosage: 5 MILLIGRAM
     Route: 048
  136. BISOPROLOL FUMARATE [Concomitant]
     Active Substance: BISOPROLOL FUMARATE
     Dosage: 5 MILLIGRAM
     Route: 048
     Dates: end: 20010714
  137. BISOPROLOL FUMARATE [Concomitant]
     Active Substance: BISOPROLOL FUMARATE
     Dosage: 8 MILLIGRAM
     Route: 048
     Dates: start: 20010616, end: 20010714
  138. AMPHOTERICIN B\TETRACYCLINE [Suspect]
     Active Substance: AMPHOTERICIN B\TETRACYCLINE
     Indication: Antifungal prophylaxis
     Dosage: 200 MILLIGRAM, QD
     Route: 048
     Dates: start: 20010703, end: 20010714
  139. PLAVIX [Suspect]
     Active Substance: CLOPIDOGREL BISULFATE
     Indication: Coronary artery disease
     Dosage: 75 MILLIGRAM
     Route: 048
     Dates: start: 20010704, end: 20010714
  140. TRANXENE [Suspect]
     Active Substance: CLORAZEPATE DIPOTASSIUM
     Indication: Restlessness
     Dosage: 10 MILLIGRAM
     Dates: start: 20010710, end: 20010714
  141. METOLAZONE [Suspect]
     Active Substance: METOLAZONE
     Indication: Hypertension
     Dosage: 2 MILLIGRAM
     Route: 048
     Dates: start: 20010712, end: 20010713
  142. FUROSEMIDE [Suspect]
     Active Substance: FUROSEMIDE
     Indication: Hypertension
     Dosage: 80 MILLIGRAM, QD
     Route: 042
     Dates: start: 20010703, end: 20010714
  143. .ALPHA.-ACETYLDIGOXIN [Suspect]
     Active Substance: .ALPHA.-ACETYLDIGOXIN
     Indication: Coronary artery disease
     Dosage: 1 DOSAGE FORM
     Route: 048
     Dates: start: 20010703
  144. DALTEPARIN SODIUM [Suspect]
     Active Substance: DALTEPARIN SODIUM
     Indication: Thrombosis prophylaxis
     Dosage: 2500 INTERNATIONAL UNIT, QD
     Route: 058
     Dates: start: 20010703, end: 20010714

REACTIONS (14)
  - Respiratory disorder [Fatal]
  - Toxic epidermal necrolysis [Fatal]
  - Multiple organ dysfunction syndrome [Fatal]
  - Cholelithiasis [Fatal]
  - Erythema [Fatal]
  - Cholecystitis [Fatal]
  - Condition aggravated [Fatal]
  - Electrolyte imbalance [Fatal]
  - Hyperthyroidism [Fatal]
  - Restlessness [Fatal]
  - Diarrhoea [Fatal]
  - Nausea [Fatal]
  - Dermatitis exfoliative [Fatal]
  - Blister [Fatal]

NARRATIVE: CASE EVENT DATE: 20010703
